FAERS Safety Report 4542407-8 (Version None)
Quarter: 2004Q4

REPORT INFORMATION
  Report Type: 
  Country: None (occurrence: None)
  Receive Date: 20041227
  Receipt Date: 20041213
  Transmission Date: 20050328
  Serious: Yes (Hospitalization)
  Sender: FDA-Public Use
  Company Number: 210837

PATIENT
  Age: 17 Year
  Sex: Male
  Weight: 77 kg

DRUGS (9)
  1. NUTROPIN AQ [Suspect]
     Indication: BODY HEIGHT BELOW NORMAL
     Dosage: 5 MG, QD
     Dates: start: 20040501, end: 20040501
  2. CYCLOSPORINE [Concomitant]
  3. MEDROL [Concomitant]
  4. IMURAN [Concomitant]
  5. PROGRAF [Concomitant]
  6. CELLCEPT [Concomitant]
  7. ATACAND [Concomitant]
  8. BACTRIM [Concomitant]
  9. PROTONIX [Concomitant]

REACTIONS (3)
  - KIDNEY TRANSPLANT REJECTION [None]
  - THERAPEUTIC AGENT TOXICITY [None]
  - TREATMENT NONCOMPLIANCE [None]
